FAERS Safety Report 7579862-5 (Version None)
Quarter: 2011Q2

REPORT INFORMATION
  Report Type: 
  Country: None (occurrence: None)
  Receive Date: 20110622
  Receipt Date: 20110606
  Transmission Date: 20111010
  Serious: Yes (Hospitalization, Other)
  Sender: FDA-Public Use
  Company Number: 2011P1006997

PATIENT
  Age: 73 Year
  Sex: Female
  Weight: 61.2356 kg

DRUGS (4)
  1. KERAFOAM 42 60GM (NO PREF. NAME) [Suspect]
     Indication: DRY SKIN
     Dosage: HS;TOP
     Route: 061
     Dates: start: 20110228, end: 20110331
  2. KERAFOAM 42 60GM (NO PREF. NAME) [Suspect]
     Indication: SKIN DISORDER
     Dosage: HS;TOP
     Route: 061
     Dates: start: 20110228, end: 20110331
  3. OMEPRAZOLE [Concomitant]
  4. LIPITOR [Concomitant]

REACTIONS (4)
  - FEMUR FRACTURE [None]
  - HIP FRACTURE [None]
  - BALANCE DISORDER [None]
  - FALL [None]
